FAERS Safety Report 25272084 (Version 1)
Quarter: 2025Q2

REPORT INFORMATION
  Report Type: Spontaneous
  Country: TW (occurrence: TW)
  Receive Date: 20250506
  Receipt Date: 20250506
  Transmission Date: 20250716
  Serious: Yes (Hospitalization)
  Sender: NOVARTIS
  Company Number: TW-SANDOZ-SDZ2025TW027257

PATIENT
  Age: 86 Year
  Sex: Female
  Weight: 61.7 kg

DRUGS (7)
  1. HYDROCHLOROTHIAZIDE\VALSARTAN [Suspect]
     Active Substance: HYDROCHLOROTHIAZIDE\VALSARTAN
     Indication: Product used for unknown indication
     Dosage: UNK UNK, QD, 1 UNK, QD
     Route: 048
     Dates: start: 20241211, end: 20250115
  2. FLUIMUCIL [Concomitant]
     Active Substance: ACETYLCYSTEINE
     Indication: Product used for unknown indication
     Dosage: 600 MG, QD
     Route: 048
     Dates: start: 20240918
  3. NORVASC [Concomitant]
     Active Substance: AMLODIPINE BESYLATE
     Indication: Product used for unknown indication
     Dosage: 5 MG, QD
     Route: 048
     Dates: start: 20240918
  4. Ankomin [Concomitant]
     Indication: Product used for unknown indication
     Dosage: 500 MG, QD
     Route: 048
     Dates: start: 20240918
  5. SYMBICORT [Concomitant]
     Active Substance: BUDESONIDE\FORMOTEROL FUMARATE DIHYDRATE
     Indication: Product used for unknown indication
     Route: 055
     Dates: start: 20240918
  6. PREDNISOLONE [Concomitant]
     Active Substance: PREDNISOLONE
     Indication: Product used for unknown indication
     Route: 048
     Dates: start: 20241011
  7. Dl-methylephedrine HCL [Concomitant]
     Indication: Product used for unknown indication
     Dosage: 30 MG, BID (30 MG EVERY 0.5 DAYS SECOND-RATE)
     Route: 048
     Dates: start: 20240911

REACTIONS (1)
  - Hyponatraemia [Recovered/Resolved]

NARRATIVE: CASE EVENT DATE: 20250115
